FAERS Safety Report 8869200 (Version 2)
Quarter: 2012Q4

REPORT INFORMATION
  Report Type: Spontaneous
  Country: DE (occurrence: None)
  Receive Date: 20121024
  Receipt Date: 20121107
  Transmission Date: 20130627
  Serious: Yes (Hospitalization, Other)
  Sender: FDA-Public Use
  Company Number: 2012MA012245

PATIENT
  Age: 66 Year
  Sex: Male

DRUGS (6)
  1. HALOPERIDOL LACTATE [Suspect]
     Indication: MANIC EPISODE
  2. LITHIUM CARBONATE [Concomitant]
  3. MIANSERIN [Concomitant]
  4. TAMSULOSIN [Concomitant]
  5. QUETIAPINE [Concomitant]
  6. ALLOPURINOL [Concomitant]

REACTIONS (13)
  - Confusional state [None]
  - Disorientation [None]
  - Status epilepticus [None]
  - Toxic encephalopathy [None]
  - Mania [None]
  - Facial paresis [None]
  - Hemiparesis [None]
  - Cognitive disorder [None]
  - Incoherent [None]
  - Euphoric mood [None]
  - Impaired reasoning [None]
  - Perseveration [None]
  - Vascular dementia [None]
